FAERS Safety Report 20847983 (Version 3)
Quarter: 2022Q2

REPORT INFORMATION
  Report Type: Spontaneous
  Country: US (occurrence: US)
  Receive Date: 20220519
  Receipt Date: 20220614
  Transmission Date: 20220720
  Serious: No
  Sender: FDA-Public Use
  Company Number: US-UNITED THERAPEUTICS-UNT-2022-009940

PATIENT
  Age: 33 Year
  Sex: Female

DRUGS (5)
  1. REMODULIN [Suspect]
     Active Substance: TREPROSTINIL
     Indication: Pulmonary arterial hypertension
     Dosage: UNK, CONTINUING
     Route: 058
     Dates: start: 20220330
  2. REMODULIN [Suspect]
     Active Substance: TREPROSTINIL
     Dosage: 0.0433 ?G/KG, CONTINUING
     Route: 058
     Dates: end: 20220505
  3. REMODULIN [Suspect]
     Active Substance: TREPROSTINIL
     Indication: Pulmonary arterial hypertension
     Dosage: 0.04330 ?G/KG, CONTINUING
     Route: 058
     Dates: start: 20220506
  4. REMODULIN [Suspect]
     Active Substance: TREPROSTINIL
     Dosage: 0.04826 ?G/KG, CONTINUING
     Route: 058
     Dates: start: 202205
  5. REMODULIN [Suspect]
     Active Substance: TREPROSTINIL
     Dosage: 0.04998 ?G/KG, CONTINUING
     Route: 058

REACTIONS (8)
  - Infusion site pain [Unknown]
  - Infusion site irritation [Unknown]
  - Infusion site erosion [Recovering/Resolving]
  - Infusion site erythema [Not Recovered/Not Resolved]
  - Dermatitis contact [Unknown]
  - Product label confusion [Unknown]
  - Product adhesion issue [Unknown]
  - Device maintenance issue [Unknown]

NARRATIVE: CASE EVENT DATE: 20220401
